FAERS Safety Report 4669173-X (Version None)
Quarter: 2005Q2

REPORT INFORMATION
  Report Type: 
  Country: None (occurrence: None)
  Receive Date: 20050519
  Receipt Date: 20050505
  Transmission Date: 20051028
  Serious: Yes (Disabling)
  Sender: FDA-Public Use
  Company Number: 11070

PATIENT
  Age: 29 Year
  Sex: Female

DRUGS (5)
  1. BUPIVACAINE [Suspect]
     Indication: ANAESTHESIA
     Dosage: 5 ML ONCE/15 ML ONCE; EP
     Route: 008
  2. FENTANYL [Suspect]
     Indication: ANAESTHESIA
     Dosage: NI,
     Route: 008
  3. EPHEDRINE SUL CAP [Suspect]
     Indication: HYPOTENSION
     Dosage: 10 MICROGRAM ONCE/30 MICROGRAM ONCE; UNK
  4. LIDOCAINE [Suspect]
     Indication: ANAESTHESIA
     Dosage: NI, EP
     Route: 008
  5. LEVOBUPIVACAINE [Suspect]
     Indication: ANAESTHESIA
     Dosage: 7.5 ML ONCE; EP
     Route: 008

REACTIONS (19)
  - AGITATION [None]
  - BLINDNESS [None]
  - CAESAREAN SECTION [None]
  - CEREBRAL THROMBOSIS [None]
  - CONFUSIONAL STATE [None]
  - ECLAMPSIA [None]
  - ECONOMIC PROBLEM [None]
  - EPILEPSY [None]
  - GLASGOW COMA SCALE ABNORMAL [None]
  - GRAND MAL CONVULSION [None]
  - HAEMORRHAGE [None]
  - HEADACHE [None]
  - HYPOTENSION [None]
  - IRRITABILITY [None]
  - POSTPARTUM DISORDER [None]
  - PYREXIA [None]
  - SOCIAL PROBLEM [None]
  - SPEECH DISORDER [None]
  - VISUAL DISTURBANCE [None]
